FAERS Safety Report 23339308 (Version 1)
Quarter: 2023Q4

REPORT INFORMATION
  Report Type: Spontaneous
  Country: RU (occurrence: None)
  Receive Date: 20231226
  Receipt Date: 20231226
  Transmission Date: 20240110
  Serious: Yes (Other)
  Sender: FDA-Public Use
  Company Number: 2023A292240

PATIENT
  Age: 78 Year
  Sex: Female
  Weight: 101 kg

DRUGS (1)
  1. DAPAGLIFLOZIN [Suspect]
     Active Substance: DAPAGLIFLOZIN
     Indication: Diabetes mellitus
     Route: 048
     Dates: start: 20230908, end: 20230921

REACTIONS (3)
  - Oedema genital [Recovering/Resolving]
  - Hyperaemia [Recovering/Resolving]
  - Micturition disorder [Recovering/Resolving]
